FAERS Safety Report 12165170 (Version 1)
Quarter: 2016Q1

REPORT INFORMATION
  Report Type: Report from Study
  Country: US (occurrence: US)
  Receive Date: 20160309
  Receipt Date: 20160309
  Transmission Date: 20160526
  Serious: No
  Sender: FDA-Public Use
  Company Number: US-ABBVIE-15P-163-1414044-00

PATIENT
  Age: 49 Year
  Sex: Female

DRUGS (2)
  1. DIURETIC [Concomitant]
     Active Substance: UNSPECIFIED INGREDIENT
     Indication: HYPERTENSION
  2. LUPRON DEPOT [Suspect]
     Active Substance: LEUPROLIDE ACETATE
     Indication: UTERINE LEIOMYOMA
     Route: 030
     Dates: start: 20141029

REACTIONS (13)
  - Musculoskeletal pain [Unknown]
  - Breast pain [Unknown]
  - Hypertension [Unknown]
  - Headache [Unknown]
  - Pain [Unknown]
  - Flushing [Unknown]
  - Fibromyalgia [Unknown]
  - Anxiety [Unknown]
  - Pain in extremity [Unknown]
  - Paraesthesia [Unknown]
  - Arthralgia [Unknown]
  - Palpitations [Unknown]
  - Visual impairment [Unknown]

NARRATIVE: CASE EVENT DATE: 201411
